FAERS Safety Report 17375953 (Version 1)
Quarter: 2020Q1

REPORT INFORMATION
  Report Type: Spontaneous
  Country: DE (occurrence: DE)
  Receive Date: 20200206
  Receipt Date: 20200206
  Transmission Date: 20200409
  Serious: Yes (Hospitalization, Other)
  Sender: FDA-Public Use
  Company Number: DE-LUPIN PHARMACEUTICALS INC.-2020-00474

PATIENT
  Age: 80 Year
  Sex: Female

DRUGS (12)
  1. CLINDAMYCIN. [Concomitant]
     Active Substance: CLINDAMYCIN
     Indication: ARTHRITIS INFECTIVE
     Dosage: 1 GRAM (IN 40 G METHACRYLATE)
     Route: 065
  2. BACTERIOPHAGES [Concomitant]
     Active Substance: UNSPECIFIED INGREDIENT
     Indication: ARTHRITIS INFECTIVE
     Dosage: 100 MILLILITER, SINGLE
     Route: 065
  3. SULFAMETHOXAZOLE AND TRIMETHOPRIM [Suspect]
     Active Substance: SULFAMETHOXAZOLE\TRIMETHOPRIM
     Indication: ARTHRITIS INFECTIVE
     Dosage: UNK
     Route: 065
  4. AVIBACTAM;CEFTAZIDIME [Concomitant]
     Active Substance: AVIBACTAM SODIUM\CEFTAZIDIME
     Indication: ARTHRITIS INFECTIVE
     Dosage: UNK
     Route: 065
  5. COLISTIN [Concomitant]
     Active Substance: COLISTIN
     Indication: ARTHRITIS INFECTIVE
     Dosage: 150 MILLIGRAM, QD
     Route: 042
  6. CEFEPIME [Concomitant]
     Active Substance: CEFEPIME HYDROCHLORIDE
     Indication: ARTHRITIS INFECTIVE
     Dosage: UNK
     Route: 065
  7. DAPTOMYCIN. [Concomitant]
     Active Substance: DAPTOMYCIN
     Indication: ARTHRITIS INFECTIVE
     Dosage: 700 MILLIGRAM (EVERY 48 HOURS)
     Route: 065
  8. SULFAMETHOXAZOLE AND TRIMETHOPRIM [Suspect]
     Active Substance: SULFAMETHOXAZOLE\TRIMETHOPRIM
     Dosage: UNK (RENAL DOSE)
     Route: 065
  9. CEFTAZIDIME. [Suspect]
     Active Substance: CEFTAZIDIME
     Indication: ARTHRITIS INFECTIVE
     Dosage: 2 GRAM, BID
     Route: 042
  10. MEROPENEM. [Concomitant]
     Active Substance: MEROPENEM
     Indication: ARTHRITIS INFECTIVE
     Dosage: 1 GRAM, BID
     Route: 042
  11. BACTERIOPHAGES [Concomitant]
     Active Substance: UNSPECIFIED INGREDIENT
     Dosage: 5 MILLILITER, TID
     Route: 065
  12. GENTAMICIN. [Concomitant]
     Active Substance: GENTAMICIN
     Indication: ARTHRITIS INFECTIVE
     Dosage: 1 GRAM (IN 40 G METHACRYLATE)
     Route: 065

REACTIONS (4)
  - Drug resistance [Unknown]
  - Disorientation [Recovering/Resolving]
  - Confusional state [Recovering/Resolving]
  - Agitation [Recovering/Resolving]
